FAERS Safety Report 16470861 (Version 1)
Quarter: 2019Q2

REPORT INFORMATION
  Report Type: Spontaneous
  Country: CN (occurrence: CN)
  Receive Date: 20190624
  Receipt Date: 20190624
  Transmission Date: 20190711
  Serious: Yes (Other)
  Sender: FDA-Public Use
  Company Number: CN-NAPPMUNDI-GBR-2019-0067237

PATIENT
  Age: 58 Year
  Sex: Male
  Weight: 57 kg

DRUGS (2)
  1. MS CONTIN [Suspect]
     Active Substance: MORPHINE SULFATE
     Indication: ANALGESIC THERAPY
     Dosage: 90 MG, Q12H
     Route: 048
     Dates: start: 20190521, end: 20190527
  2. MS CONTIN [Suspect]
     Active Substance: MORPHINE SULFATE
     Dosage: 60 MG, Q12H
     Route: 048
     Dates: start: 20190514, end: 20190520

REACTIONS (4)
  - Back pain [Unknown]
  - Neck pain [Unknown]
  - Constipation [Recovered/Resolved]
  - Dysuria [Recovering/Resolving]

NARRATIVE: CASE EVENT DATE: 20190516
